FAERS Safety Report 6626378-6 (Version None)
Quarter: 2010Q1

REPORT INFORMATION
  Report Type: 
  Country: None (occurrence: None)
  Receive Date: 20100310
  Receipt Date: 20090616
  Transmission Date: 20100710
  Serious: No
  Sender: FDA-Public Use
  Company Number: US-ABBOTT-09P-163-0580326-00

PATIENT
  Sex: Female
  Weight: 87.168 kg

DRUGS (1)
  1. LUPRON DEPOT [Suspect]
     Indication: UTERINE LEIOMYOMA
     Dates: start: 20080701, end: 20090101

REACTIONS (2)
  - NEUROPATHY PERIPHERAL [None]
  - PAIN IN EXTREMITY [None]
